FAERS Safety Report 6228163-6 (Version None)
Quarter: 2009Q2

REPORT INFORMATION
  Report Type: 
  Country: None (occurrence: None)
  Receive Date: 20090612
  Receipt Date: 20090610
  Transmission Date: 20091009
  Serious: Yes (Hospitalization)
  Sender: FDA-Public Use
  Company Number: US-BRISTOL-MYERS SQUIBB COMPANY-14658181

PATIENT
  Age: 56 Year
  Sex: Male

DRUGS (4)
  1. ABILIFY [Suspect]
     Indication: BIPOLAR DISORDER
  2. ADDERALL 10 [Concomitant]
  3. CELEXA [Concomitant]
  4. GEODON [Concomitant]

REACTIONS (1)
  - ARTHRITIS [None]
